FAERS Safety Report 15029135 (Version 3)
Quarter: 2018Q3

REPORT INFORMATION
  Report Type: Spontaneous
  Country: DE (occurrence: DE)
  Receive Date: 20180619
  Receipt Date: 20180709
  Transmission Date: 20181010
  Serious: Yes (Hospitalization, Other)
  Sender: FDA-Public Use
  Company Number: PHHY2016DE186895

PATIENT
  Sex: Female

DRUGS (10)
  1. PREDNISONE. [Suspect]
     Active Substance: PREDNISONE
     Indication: PRODUCT USED FOR UNKNOWN INDICATION
     Dosage: 100 MG, QD (1 TIME A DAY FOR 5 DAYS) ( (6 CYCLES OF CHLIP?14)
     Route: 048
     Dates: start: 20160702
  2. RITUXIMAB. [Suspect]
     Active Substance: RITUXIMAB
     Indication: B-CELL LYMPHOMA
     Dosage: 768.75 MG, UNK (1 TIME A DAY FOR 1 DAY)
     Route: 042
     Dates: start: 20160701, end: 20160701
  3. DOXORUBICIN [Suspect]
     Active Substance: DOXORUBICIN
     Indication: B-CELL LYMPHOMA
     Dosage: 50 MG/M2, QD (6 CYCLES OF CHLIP?14)
     Route: 042
  4. DOXORUBICIN [Suspect]
     Active Substance: DOXORUBICIN
     Dosage: 102.5 MG, QD (1 TIME A DAY FOR 1 DAYS)
     Route: 042
     Dates: start: 20160702, end: 20160702
  5. CYCLOPHOSPHAMIDE. [Suspect]
     Active Substance: CYCLOPHOSPHAMIDE
     Indication: B-CELL LYMPHOMA
     Dosage: 750 MG/M2, (6 CYCLES OF CHLIP?14)
     Route: 042
  6. VINCRISTINE [Suspect]
     Active Substance: VINCRISTINE
     Indication: B-CELL LYMPHOMA
     Dosage: 1.4 MG/M2, UNK (6 CYCLES OF CHLIP?14)
     Route: 042
  7. PREDNISONE. [Suspect]
     Active Substance: PREDNISONE
     Dosage: 100 MG, QD (1 TIME A DAY FOR 5 DAYS) ( (6 CYCLES OF CHLIP?14)
     Route: 048
     Dates: start: 20160706
  8. CYCLOPHOSPHAMIDE. [Suspect]
     Active Substance: CYCLOPHOSPHAMIDE
     Dosage: 1537.5 MG, QD (1 TIMES A DAY FOR 1 DAY)
     Route: 042
     Dates: start: 20160702
  9. VINCRISTINE [Suspect]
     Active Substance: VINCRISTINE
     Dosage: 4.1 MG, QD (1 TIME A DAY FOR 1 DAY)
     Route: 042
     Dates: start: 20160705, end: 20160705
  10. PEGFILGRASTIM [Suspect]
     Active Substance: PEGFILGRASTIM
     Indication: B-CELL LYMPHOMA
     Dosage: 6 MG, UNK (1 TIME A DAY FOR 1 DAY)
     Route: 058
     Dates: start: 20160703

REACTIONS (2)
  - Embolism [Recovered/Resolved with Sequelae]
  - Neutrophil count decreased [Unknown]

NARRATIVE: CASE EVENT DATE: 20160714
